FAERS Safety Report 9851647 (Version 1)
Quarter: 2014Q1

REPORT INFORMATION
  Report Type: Spontaneous
  Country: RU (occurrence: RU)
  Receive Date: 20140129
  Receipt Date: 20140129
  Transmission Date: 20141002
  Serious: Yes (Hospitalization)
  Sender: FDA-Public Use
  Company Number: RU-009507513-1401RUS013176

PATIENT
  Age: 72 Year
  Sex: Male

DRUGS (4)
  1. EPTIFIBATIDE [Suspect]
     Indication: CORONARY ARTERY THROMBOSIS
     Dosage: UNK
     Route: 042
     Dates: start: 20131022, end: 20131022
  2. CLOPIDOGREL [Suspect]
     Indication: ACUTE CORONARY SYNDROME
     Dosage: UNK
     Route: 048
     Dates: start: 20131022
  3. ASPIRIN [Suspect]
     Indication: ACUTE CORONARY SYNDROME
     Dosage: UNK
     Route: 048
     Dates: start: 20131022
  4. HEPARIN [Suspect]
     Indication: ACUTE CORONARY SYNDROME
     Dosage: UNK
     Route: 013
     Dates: start: 20131022

REACTIONS (1)
  - Pericardial haemorrhage [Recovered/Resolved]
